FAERS Safety Report 5007603-4 (Version None)
Quarter: 2006Q2

REPORT INFORMATION
  Report Type: 
  Country: None (occurrence: None)
  Receive Date: 20060518
  Receipt Date: 20060508
  Transmission Date: 20061013
  Serious: Yes (Hospitalization)
  Sender: FDA-Public Use
  Company Number: 2006026032

PATIENT
  Age: 64 Year
  Sex: Male
  Weight: 71.6 kg

DRUGS (10)
  1. SUTENT [Suspect]
     Indication: RENAL CELL CARCINOMA STAGE UNSPECIFIED
     Dosage: 50 MG (50 MG, DAILY INTERVAL: 4 WEEKS ON 2 OFF), ORAL
     Route: 048
     Dates: start: 20051222, end: 20060215
  2. SUTENT [Suspect]
     Indication: RENAL CELL CARCINOMA STAGE UNSPECIFIED
     Dosage: 50 MG (50 MG, DAILY INTERVAL: 4 WEEKS ON 2 OFF), ORAL
     Route: 048
     Dates: start: 20060222, end: 20060225
  3. ASPIRIN [Concomitant]
  4. CO-BETALOC (HYDROCHLOROTHIAZIDE, METOPROLOL TARTRATE) [Concomitant]
  5. ATORVASTATIN CALCIUM [Concomitant]
  6. NITRO-SPRAY (ISOSORBIDE DINITRATE) [Concomitant]
  7. CLONAZEPAM [Concomitant]
  8. LEVOTHYROXINE SODIUM [Concomitant]
  9. CELEXA (CITALOLPRAM HYDROBROMIDE) [Concomitant]
  10. LOPERAMIDE HCL [Concomitant]

REACTIONS (2)
  - DEHYDRATION [None]
  - RENAL FAILURE [None]
